FAERS Safety Report 11909728 (Version 1)
Quarter: 2016Q1

REPORT INFORMATION
  Report Type: Spontaneous
  Country: US (occurrence: None)
  Receive Date: 20160111
  Receipt Date: 20160111
  Transmission Date: 20160526
  Serious: No
  Sender: FDA-Public Use
  Company Number: None

PATIENT
  Age: 10 Year
  Sex: Female

DRUGS (1)
  1. HUMALOG CARTRIDGE [Suspect]
     Active Substance: INSULIN LISPRO
     Dosage: INJECT UP TO 30 UNITS PER DAY AS DIRECTED
     Route: 058
     Dates: start: 201511, end: 201512

REACTIONS (2)
  - Product quality issue [None]
  - Drug ineffective [None]

NARRATIVE: CASE EVENT DATE: 20151206
